FAERS Safety Report 5034702-3 (Version None)
Quarter: 2006Q2

REPORT INFORMATION
  Report Type: 
  Country: None (occurrence: None)
  Receive Date: 20060621
  Receipt Date: 20060602
  Transmission Date: 20061013
  Serious: Yes (Death, Hospitalization)
  Sender: FDA-Public Use
  Company Number: 200613783BWH

PATIENT
  Age: 53 Year
  Sex: Male
  Weight: 71.8 kg

DRUGS (11)
  1. SORAFENIB [Suspect]
     Indication: NON-SMALL CELL LUNG CANCER
     Dosage: SEE IMAGE
     Route: 048
     Dates: start: 20060428, end: 20060515
  2. SORAFENIB [Suspect]
     Indication: NON-SMALL CELL LUNG CANCER
     Dosage: SEE IMAGE
     Route: 048
     Dates: start: 20060526, end: 20060528
  3. FENTANYL TRANSDERMAL SYSTEM [Concomitant]
  4. FLOMAX [Concomitant]
  5. LEXAPRO [Concomitant]
  6. OXYCODONE HCL [Concomitant]
  7. PREDNISONE [Concomitant]
  8. TEMAZEPAM [Concomitant]
  9. PROTONIX [Concomitant]
  10. XOPENEX [Concomitant]
  11. MEGACE [Concomitant]

REACTIONS (23)
  - AORTIC VALVE INCOMPETENCE [None]
  - BRONCHIOLITIS [None]
  - CARDIAC FAILURE [None]
  - DYSPNOEA [None]
  - HAEMOGLOBIN DECREASED [None]
  - HAEMOTHORAX [None]
  - LUNG INFILTRATION [None]
  - PALMAR-PLANTAR ERYTHRODYSAESTHESIA SYNDROME [None]
  - PERICARDIAL EFFUSION [None]
  - PNEUMONIA [None]
  - PNEUMONITIS [None]
  - PNEUMOTHORAX [None]
  - POST PROCEDURAL HAEMORRHAGE [None]
  - PULMONARY HAEMORRHAGE [None]
  - PULMONARY HYPERTENSION [None]
  - PULMONARY OEDEMA [None]
  - RASH [None]
  - RESPIRATORY FAILURE [None]
  - STOMATITIS [None]
  - SUPRAVENTRICULAR TACHYCARDIA [None]
  - TACHYCARDIA [None]
  - THROMBOSIS [None]
  - TRICUSPID VALVE INCOMPETENCE [None]
